FAERS Safety Report 5491407-2 (Version None)
Quarter: 2007Q4

REPORT INFORMATION
  Report Type: 
  Country: None (occurrence: None)
  Receive Date: 20071018
  Receipt Date: 20071004
  Transmission Date: 20080405
  Serious: Yes (Hospitalization)
  Sender: FDA-Public Use
  Company Number: S07-ESP-03797-01

PATIENT
  Age: 75 Year
  Sex: Female

DRUGS (3)
  1. ESERTIA (ESCITALOPRAM) [Suspect]
     Indication: DEPRESSION
     Dosage: 10  MG BID PO
     Route: 048
     Dates: start: 20001101
  2. RISPERIDONE [Suspect]
     Dosage: 2 MG QD PO
     Route: 048
     Dates: start: 20060701
  3. DURPHALAC (LACTULOSE) [Concomitant]

REACTIONS (5)
  - AGITATION [None]
  - BLOOD CORTISOL INCREASED [None]
  - DRUG INTERACTION [None]
  - INAPPROPRIATE ANTIDIURETIC HORMONE SECRETION [None]
  - RESTLESSNESS [None]
